FAERS Safety Report 9061990 (Version 2)
Quarter: 2013Q1

REPORT INFORMATION
  Report Type: Spontaneous
  Country: NL (occurrence: NL)
  Receive Date: 20130204
  Receipt Date: 20130307
  Transmission Date: 20140127
  Serious: Yes (Death, Other)
  Sender: FDA-Public Use
  Company Number: NL-ELI_LILLY_AND_COMPANY-NL201301010066

PATIENT
  Age: 54 Year
  Sex: Male

DRUGS (1)
  1. CYMBALTA [Suspect]
     Indication: DEPRESSION
     Dosage: 60 MG, QD

REACTIONS (4)
  - Electrolyte imbalance [Fatal]
  - Coma [Unknown]
  - Hyperhidrosis [Unknown]
  - Dehydration [Unknown]
